FAERS Safety Report 13799996 (Version 1)
Quarter: 2017Q3

REPORT INFORMATION
  Report Type: Spontaneous
  Country: US (occurrence: US)
  Receive Date: 20170727
  Receipt Date: 20170727
  Transmission Date: 20171127
  Serious: No
  Sender: FDA-Public Use
  Company Number: US-EISAI MEDICAL RESEARCH-EC-2017-029409

PATIENT
  Sex: Female

DRUGS (3)
  1. ACIPHEX [Suspect]
     Active Substance: RABEPRAZOLE SODIUM
     Route: 048
  2. ACIPHEX [Suspect]
     Active Substance: RABEPRAZOLE SODIUM
     Route: 048
  3. ACIPHEX [Suspect]
     Active Substance: RABEPRAZOLE SODIUM
     Indication: GASTROOESOPHAGEAL REFLUX DISEASE
     Route: 048

REACTIONS (1)
  - Drug ineffective [Recovered/Resolved]
